FAERS Safety Report 17730257 (Version 1)
Quarter: 2020Q2

REPORT INFORMATION
  Report Type: Spontaneous
  Country: US (occurrence: US)
  Receive Date: 20200430
  Receipt Date: 20200430
  Transmission Date: 20200714
  Serious: No
  Sender: FDA-Public Use
  Company Number: US-BLUEPRINT MEDICINES CORPORATION-SP-US-2020-000252

PATIENT
  Sex: Female

DRUGS (1)
  1. AYVAKIT [Suspect]
     Active Substance: AVAPRITINIB
     Indication: BRONCHIAL CARCINOMA
     Route: 048
     Dates: start: 20200130

REACTIONS (3)
  - Off label use [Unknown]
  - Weight increased [Unknown]
  - Fluid retention [Unknown]
